FAERS Safety Report 21938196 (Version 1)
Quarter: 2023Q1

REPORT INFORMATION
  Report Type: Report from Study
  Country: US (occurrence: US)
  Receive Date: 20230201
  Receipt Date: 20230201
  Transmission Date: 20230418
  Serious: No
  Sender: FDA-Public Use
  Company Number: US-INCYTE CORPORATION-2022IN007155

PATIENT

DRUGS (2)
  1. PEMIGATINIB [Suspect]
     Active Substance: PEMIGATINIB
     Indication: Cholangiocarcinoma
     Dosage: 9 MILLIGRAM
     Route: 048
  2. PEMIGATINIB [Suspect]
     Active Substance: PEMIGATINIB
     Dosage: 13.5 MILLIGRAM
     Route: 065

REACTIONS (14)
  - Product availability issue [Unknown]
  - Product dose omission issue [Unknown]
  - Appetite disorder [Unknown]
  - COVID-19 [Unknown]
  - Blood calcium increased [Unknown]
  - Fatigue [Unknown]
  - Onychoclasis [Unknown]
  - Nail disorder [Unknown]
  - Alopecia [Unknown]
  - Dry mouth [Unknown]
  - Dry skin [Unknown]
  - Blood phosphorus increased [Unknown]
  - Constipation [Unknown]
  - Nausea [Unknown]
